FAERS Safety Report 8810364 (Version 16)
Quarter: 2014Q1

REPORT INFORMATION
  Report Type: Report from Study
  Country: CA (occurrence: CA)
  Receive Date: 20120926
  Receipt Date: 20140319
  Transmission Date: 20141002
  Serious: Yes (Life-Threatening, Other)
  Sender: FDA-Public Use
  Company Number: CA-ROCHE-1137355

PATIENT
  Age: 52 Year
  Sex: Male
  Weight: 65.3 kg

DRUGS (11)
  1. ACTEMRA [Suspect]
     Indication: RHEUMATOID ARTHRITIS
     Route: 042
     Dates: start: 20120619
  2. ACTEMRA [Suspect]
     Route: 042
     Dates: start: 20120717
  3. ACTEMRA [Suspect]
     Route: 042
     Dates: start: 20120816
  4. ACTEMRA [Suspect]
     Route: 042
     Dates: start: 20121030
  5. ACTEMRA [Suspect]
     Route: 042
     Dates: start: 20130820
  6. HYDROMORPH CONTIN [Concomitant]
  7. CELEBREX [Concomitant]
  8. PREDNISONE [Concomitant]
  9. ZOPICLONE [Concomitant]
  10. EFFEXOR [Concomitant]
  11. ATENOLOL [Concomitant]

REACTIONS (12)
  - Bacterial infection [Recovered/Resolved]
  - Skin ulcer [Unknown]
  - Weight decreased [Not Recovered/Not Resolved]
  - Wound [Recovering/Resolving]
  - Oedema [Unknown]
  - Injection site extravasation [Unknown]
  - Diarrhoea [Recovered/Resolved]
  - Heart rate increased [Unknown]
  - Cough [Not Recovered/Not Resolved]
  - Bronchitis [Recovered/Resolved]
  - Productive cough [Recovering/Resolving]
  - Medication error [Unknown]
